FAERS Safety Report 7778187-2 (Version None)
Quarter: 2011Q3

REPORT INFORMATION
  Report Type: 
  Country: None (occurrence: None)
  Receive Date: 20110926
  Receipt Date: 20110912
  Transmission Date: 20111222
  Serious: Yes (Hospitalization)
  Sender: FDA-Public Use
  Company Number: US-SANOFI-AVENTIS-2011SA060610

PATIENT
  Age: 10 Year
  Sex: Female

DRUGS (9)
  1. IMMUNOGLOBULINS [Concomitant]
     Route: 042
  2. SPIRONOLACTONE [Concomitant]
     Route: 065
  3. ENALAPRIL MALEATE [Concomitant]
     Route: 065
  4. ASPIRIN [Concomitant]
     Route: 065
  5. FUROSEMIDE [Suspect]
     Route: 065
  6. DIGOXIN [Suspect]
     Route: 065
  7. DOBUTAMINE HCL [Concomitant]
     Route: 042
  8. FLUTICASONE PROPIONATE/SALMETEROL [Concomitant]
     Route: 055
  9. DOPAMINE HCL [Concomitant]
     Route: 042

REACTIONS (7)
  - VENTRICULAR EXTRASYSTOLES [None]
  - ABDOMINAL PAIN [None]
  - SINUS BRADYCARDIA [None]
  - VOMITING [None]
  - NAUSEA [None]
  - HYPERKALAEMIA [None]
  - CARDIOACTIVE DRUG LEVEL INCREASED [None]
